FAERS Safety Report 15982210 (Version 1)
Quarter: 2019Q1

REPORT INFORMATION
  Report Type: Spontaneous
  Country: AT (occurrence: AT)
  Receive Date: 20190219
  Receipt Date: 20190219
  Transmission Date: 20190418
  Serious: Yes (Other)
  Sender: FDA-Public Use
  Company Number: AT-JNJFOC-20190112529

PATIENT
  Age: 81 Year
  Sex: Male

DRUGS (36)
  1. TEMGESIC [Suspect]
     Active Substance: BUPRENORPHINE HYDROCHLORIDE
     Indication: PAIN
     Route: 065
     Dates: start: 2016
  2. METAMIZOL                          /06276702/ [Concomitant]
     Active Substance: METAMIZOLE
     Dosage: 500MG, UPTO 4 TIMES DAILY
     Route: 065
     Dates: start: 201612
  3. MESALAZINE [Concomitant]
     Active Substance: MESALAMINE
     Route: 065
     Dates: start: 201612
  4. PROTHIPENDYL [Concomitant]
     Active Substance: PROTHIPENDYL
     Dosage: 1/2-1 TO SLEEP
     Route: 065
     Dates: start: 201409
  5. FENOTEROL W/IPRATROPIUM BROMIDE [Concomitant]
     Indication: DYSPNOEA
     Dosage: DA 1-2 PRESSES
     Route: 065
     Dates: start: 201409
  6. ALPRAZOLAM. [Concomitant]
     Active Substance: ALPRAZOLAM
     Indication: PRODUCT USED FOR UNKNOWN INDICATION
     Dosage: 0.5MG, 1/2-1/2-1/2
     Route: 065
     Dates: start: 201612
  7. XYLONEURAL [Concomitant]
     Indication: SCAR
     Route: 065
  8. NEURONTIN [Suspect]
     Active Substance: GABAPENTIN
     Indication: PRODUCT USED FOR UNKNOWN INDICATION
     Dosage: 300MG, 3 TIMES
     Route: 065
  9. PIROXICAM. [Concomitant]
     Active Substance: PIROXICAM
     Dosage: 2 TIMES 2 PRESSES
     Route: 065
     Dates: start: 201612
  10. NALOXONE [Concomitant]
     Active Substance: NALOXONE
     Dosage: 2MG, 1-0-0
     Route: 065
     Dates: start: 201612
  11. OXYCODONE HYDROCHLORIDE. [Suspect]
     Active Substance: OXYCODONE HYDROCHLORIDE
     Indication: PAIN
     Dosage: 20MQ,Q6H
     Route: 065
     Dates: start: 2015
  12. OXYCODONE HYDROCHLORIDE. [Suspect]
     Active Substance: OXYCODONE HYDROCHLORIDE
     Indication: PAIN
     Dosage: 80MG, Q8H
     Route: 065
     Dates: start: 2015
  13. OXYCODONE HYDROCHLORIDE. [Suspect]
     Active Substance: OXYCODONE HYDROCHLORIDE
     Indication: PAIN
     Dosage: 80MG, Q8H
     Route: 065
     Dates: start: 2016
  14. METAMIZOL                          /06276702/ [Concomitant]
     Active Substance: METAMIZOLE
     Dosage: 20 DROPS, UNKNOWN
     Route: 065
     Dates: start: 201409
  15. PANTOPRAZOLE [Concomitant]
     Active Substance: PANTOPRAZOLE
     Indication: PRODUCT USED FOR UNKNOWN INDICATION
     Dosage: 40MG, UNKNOWN
     Route: 065
     Dates: start: 201409
  16. TIOTROPIUM [Concomitant]
     Active Substance: TIOTROPIUM
     Dosage: 2 MCG, 2 PRESSES
     Route: 065
     Dates: start: 201409
  17. BUPRENORPHINE. [Suspect]
     Active Substance: BUPRENORPHINE
     Indication: PAIN
     Route: 062
     Dates: start: 2016
  18. MORPHINE [Suspect]
     Active Substance: MORPHINE
     Indication: PRODUCT USED FOR UNKNOWN INDICATION
     Route: 048
  19. DRONABINOL. [Suspect]
     Active Substance: DRONABINOL
     Indication: PAIN
     Route: 065
     Dates: start: 201502
  20. MIRTAZAPIN [Concomitant]
     Active Substance: MIRTAZAPINE
     Indication: EVIDENCE BASED TREATMENT
     Dosage: 30MG, 0-0-1
     Route: 065
     Dates: start: 201612
  21. LYRICA [Concomitant]
     Active Substance: PREGABALIN
     Route: 065
  22. OXYCODONE HYDROCHLORIDE. [Suspect]
     Active Substance: OXYCODONE HYDROCHLORIDE
     Indication: PAIN
     Dosage: 80MG, Q8H
     Route: 065
     Dates: start: 201409
  23. OXYCODONE HYDROCHLORIDE. [Suspect]
     Active Substance: OXYCODONE HYDROCHLORIDE
     Indication: PAIN
     Route: 065
     Dates: start: 2018
  24. MIRTAZAPIN [Concomitant]
     Active Substance: MIRTAZAPINE
     Indication: EVIDENCE BASED TREATMENT
     Route: 065
     Dates: start: 201409
  25. DULOXETINE. [Concomitant]
     Active Substance: DULOXETINE
     Indication: EVIDENCE BASED TREATMENT
     Dosage: 30 UNKNOWN, 1 DAILY
     Route: 065
     Dates: start: 201409
  26. FENTANYL. [Suspect]
     Active Substance: FENTANYL
     Indication: PAIN
     Dosage: 100 MCG, UNKNOWN
     Route: 062
     Dates: start: 201612
  27. OXYCODONE HYDROCHLORIDE. [Suspect]
     Active Substance: OXYCODONE HYDROCHLORIDE
     Indication: PAIN
     Dosage: 20MG, UNKNOWN
     Route: 065
     Dates: start: 2016
  28. FENOTEROL W/IPRATROPIUM BROMIDE [Concomitant]
     Indication: DYSPNOEA
     Dosage: METERED-DOSE AEROSOL UPTO 3 TIMES 2 PRESSES
     Route: 065
     Dates: start: 201612
  29. SUBOXONE [Suspect]
     Active Substance: BUPRENORPHINE HYDROCHLORIDE\NALOXONE HYDROCHLORIDE
     Indication: PAIN
     Dosage: 8/2 MG PLUS 2/0.5MG, Q12H
     Route: 065
     Dates: start: 2016
  30. SUBOXONE [Suspect]
     Active Substance: BUPRENORPHINE HYDROCHLORIDE\NALOXONE HYDROCHLORIDE
     Indication: PAIN
     Dosage: 8/2 MG 1 TIME/DAY, 2MG/0.5MG 4 TIMES/DAY
     Route: 065
     Dates: start: 2017
  31. OXYCODONE HYDROCHLORIDE. [Suspect]
     Active Substance: OXYCODONE HYDROCHLORIDE
     Indication: PAIN
     Dosage: 10MG, Q6H
     Route: 065
     Dates: start: 2014
  32. OXYCODONE HYDROCHLORIDE. [Suspect]
     Active Substance: OXYCODONE HYDROCHLORIDE
     Indication: PAIN
     Dosage: 80MG, UNKNOWN
     Route: 065
     Dates: start: 201612
  33. OXYCODONE HYDROCHLORIDE. [Suspect]
     Active Substance: OXYCODONE HYDROCHLORIDE
     Indication: PAIN
     Dosage: 80MG, Q8H
     Route: 065
     Dates: start: 201709
  34. DULOXETINE. [Concomitant]
     Active Substance: DULOXETINE
     Indication: EVIDENCE BASED TREATMENT
     Dosage: 60MG, 1-0-0
     Route: 065
     Dates: start: 201612
  35. PANTOPRAZOLE [Concomitant]
     Active Substance: PANTOPRAZOLE
     Indication: PRODUCT USED FOR UNKNOWN INDICATION
     Dosage: 40MG, 1-0-0
     Route: 065
     Dates: start: 201612
  36. AMINOSALICYLIC ACID [Concomitant]
     Active Substance: AMINOSALICYLIC ACID
     Dosage: 3 TIMES 1
     Route: 065
     Dates: start: 201409

REACTIONS (8)
  - Drug dependence [Unknown]
  - Depressed mood [Unknown]
  - Suicidal ideation [Unknown]
  - General physical health deterioration [Recovering/Resolving]
  - Drug withdrawal syndrome [Unknown]
  - Vertigo [Unknown]
  - Weight decreased [Unknown]
  - Drug ineffective [Recovered/Resolved]

NARRATIVE: CASE EVENT DATE: 201409
